FAERS Safety Report 8794276 (Version 1)
Quarter: 2012Q4

REPORT INFORMATION
  Report Type: 
  Country: CH (occurrence: CH)
  Receive Date: 20120917
  Receipt Date: 20120917
  Transmission Date: 20130627
  Serious: Yes (Hospitalization)
  Sender: FDA-Public Use
  Company Number: PHHY2012CH079435

PATIENT
  Age: 90 Year
  Sex: Male

DRUGS (10)
  1. PARONEX [Suspect]
     Indication: DEPRESSION
     Dosage: 20 mg, UNK
     Route: 048
     Dates: end: 20120526
  2. DEMETRIN [Suspect]
     Indication: DEPRESSION
     Dosage: 10 mg, UNK
     Route: 048
     Dates: end: 20120526
  3. MORPHIN HCL [Suspect]
     Indication: PAIN
     Dosage: 15 mg, UNK
     Route: 048
     Dates: start: 20120526, end: 20120602
  4. CINNAGERON [Suspect]
     Route: 048
     Dates: end: 20120526
  5. ALCOHOL [Suspect]
     Route: 048
  6. ANXIOLIT [Concomitant]
     Indication: MENTAL DISORDER
     Dosage: 7.5 mg, BID
     Route: 048
     Dates: start: 20120531, end: 20120615
  7. TEMGESIC [Concomitant]
     Indication: PAIN
     Dosage: 0.1 mg, QID
     Route: 060
     Dates: start: 20120602, end: 20120626
  8. DAFALGAN [Concomitant]
     Indication: PAIN
     Dosage: 1 g, TID
     Route: 048
  9. CLEXANE [Concomitant]
     Dosage: 40 mg per daily
     Route: 058
     Dates: start: 20120526, end: 20120531
  10. PAROXETINE [Concomitant]
     Dosage: 20 mg, UNK
     Route: 048
     Dates: start: 20120601

REACTIONS (8)
  - Fall [Recovered/Resolved]
  - Joint injury [Recovered/Resolved]
  - Inappropriate antidiuretic hormone secretion [Recovered/Resolved]
  - Hyponatraemia [Recovered/Resolved]
  - Hyperhidrosis [Recovered/Resolved]
  - Malaise [Recovered/Resolved]
  - Delirium [Recovered/Resolved]
  - Drug withdrawal syndrome [Recovered/Resolved]
